FAERS Safety Report 8011677-6 (Version None)
Quarter: 2011Q4

REPORT INFORMATION
  Report Type: 
  Country: None (occurrence: None)
  Receive Date: 20111228
  Receipt Date: 20111215
  Transmission Date: 20120403
  Serious: Yes (Death)
  Sender: FDA-Public Use
  Company Number: US-OPTIMER-20110067

PATIENT

DRUGS (13)
  1. CELEXA [Concomitant]
     Dosage: UNK
  2. LOVENOX [Concomitant]
     Dosage: UNK
  3. MAGNESIUM OXIDE [Concomitant]
     Dosage: UNK
  4. EDECRIN [Concomitant]
     Dosage: UNK
  5. ACIDOPHILUS [Concomitant]
     Dosage: UNK
  6. ASPIRIN [Concomitant]
     Dosage: UNK
  7. MEGACE [Concomitant]
     Dosage: UNK
  8. NITROGLYCERIN [Concomitant]
     Dosage: UNK
  9. LIPITOR [Concomitant]
     Dosage: UNK
  10. POTASSIUM [Concomitant]
     Dosage: UNK
  11. DIFICID [Suspect]
     Indication: CLOSTRIDIAL INFECTION
     Dosage: 200 MG, BID
     Dates: start: 20110919
  12. PEPCID [Concomitant]
     Dosage: UNK
  13. AMITRIPTYLINE [Concomitant]

REACTIONS (1)
  - CARDIAC DISORDER [None]
